FAERS Safety Report 20363948 (Version 2)
Quarter: 2022Q1

REPORT INFORMATION
  Report Type: Report from Study
  Country: US (occurrence: US)
  Receive Date: 20220121
  Receipt Date: 20220126
  Transmission Date: 20220424
  Serious: Yes (Death, Hospitalization, Other)
  Sender: FDA-Public Use
  Company Number: US-Horizon-TEP-1948-2020

PATIENT

DRUGS (16)
  1. TEPEZZA [Suspect]
     Active Substance: TEPROTUMUMAB-TRBW
     Indication: Endocrine ophthalmopathy
     Dosage: UNK
     Route: 042
     Dates: start: 202005
  2. PREDNISONE [Concomitant]
     Active Substance: PREDNISONE
     Indication: Product used for unknown indication
     Dosage: 15 MG, QD
  3. VITAMINS NOS [Concomitant]
     Active Substance: VITAMINS
     Indication: Product used for unknown indication
  4. OMEPRAZOLE [Concomitant]
     Active Substance: OMEPRAZOLE
     Indication: Product used for unknown indication
  5. ATENOLOL [Concomitant]
     Active Substance: ATENOLOL
     Indication: Product used for unknown indication
  6. ESTRADIOL [Concomitant]
     Active Substance: ESTRADIOL
     Indication: Product used for unknown indication
  7. ALENDRONATE [Concomitant]
     Active Substance: ALENDRONATE SODIUM
  8. FERROUS SULFATE [Concomitant]
     Active Substance: FERROUS SULFATE
  9. LEVOTHYROXINE [Concomitant]
     Active Substance: LEVOTHYROXINE
  10. LOSARTAN [Concomitant]
     Active Substance: LOSARTAN
  11. PANTOPRAZOLE [Concomitant]
     Active Substance: PANTOPRAZOLE
  12. FLUTICASONE PROPIONATE [Concomitant]
     Active Substance: FLUTICASONE PROPIONATE
  13. SYMBICORT [Concomitant]
     Active Substance: BUDESONIDE\FORMOTEROL FUMARATE DIHYDRATE
  14. TRAMADOL [Concomitant]
     Active Substance: TRAMADOL
  15. RETINOL [Concomitant]
     Active Substance: RETINOL
  16. CHOLECALCIFEROL [Concomitant]
     Active Substance: CHOLECALCIFEROL

REACTIONS (20)
  - Death [Fatal]
  - Blood pressure increased [Unknown]
  - COVID-19 pneumonia [Recovered/Resolved]
  - Thrombosis [Unknown]
  - Sepsis [Recovered/Resolved]
  - Kidney infection [Unknown]
  - Urinary tract infection [Recovered/Resolved]
  - COVID-19 [Unknown]
  - Pulmonary embolism [Unknown]
  - Clostridium difficile infection [Unknown]
  - Eye infection [Unknown]
  - Eye pain [Unknown]
  - Decreased appetite [Unknown]
  - Weight decreased [Unknown]
  - Taste disorder [Unknown]
  - Asthenia [Unknown]
  - Fatigue [Unknown]
  - Diarrhoea [Unknown]
  - Urinary tract infection [Unknown]
  - Off label use [Unknown]

NARRATIVE: CASE EVENT DATE: 20200901
